FAERS Safety Report 7784280-0 (Version None)
Quarter: 2011Q3

REPORT INFORMATION
  Report Type: 
  Country: None (occurrence: None)
  Receive Date: 20110928
  Receipt Date: 20110915
  Transmission Date: 20111222
  Serious: Yes (Hospitalization)
  Sender: FDA-Public Use
  Company Number: PHHY2011FR81077

PATIENT
  Sex: Male

DRUGS (10)
  1. NEORAL [Suspect]
     Dosage: 200 MG,
     Dates: end: 20070902
  2. NEORAL [Suspect]
     Dosage: 240 MG, UNK
  3. NEORAL [Suspect]
     Indication: RENAL TRANSPLANT
     Dosage: 750 MG, UNK
     Dates: start: 20070728, end: 20070801
  4. MYCOPHENOLIC ACID [Suspect]
     Dosage: 2160 MG, UNK
     Dates: start: 20070729, end: 20071009
  5. MYCOPHENOLIC ACID [Suspect]
     Dosage: 1440 MG,
     Dates: start: 20071010
  6. NEORAL [Suspect]
     Dosage: 220 MG
  7. SIMULECT [Concomitant]
     Dosage: 20 MG,
     Dates: start: 20070801
  8. MYCOPHENOLIC ACID [Suspect]
     Indication: RENAL TRANSPLANT
     Dosage: 1080 MG, DAILY
     Dates: start: 20070728
  9. NEORAL [Suspect]
     Dosage: 800 MG, UNK
     Dates: start: 20070831
  10. SOLU-MEDROL [Concomitant]
     Indication: PROPHYLAXIS AGAINST TRANSPLANT REJECTION
     Dosage: 500 MG, UNK
     Dates: start: 20070728

REACTIONS (7)
  - PYREXIA [None]
  - CONCOMITANT DISEASE PROGRESSION [None]
  - DRUG INEFFECTIVE [None]
  - BLOOD CREATININE INCREASED [None]
  - PYELONEPHRITIS [None]
  - RENAL FAILURE ACUTE [None]
  - PROTEIN URINE PRESENT [None]
